FAERS Safety Report 18380233 (Version 4)
Quarter: 2021Q1

REPORT INFORMATION
  Report Type: Report from Study
  Country: None (occurrence: NL)
  Receive Date: 20201014
  Receipt Date: 20210322
  Transmission Date: 20210419
  Serious: Yes (Hospitalization)
  Sender: FDA-Public Use
  Company Number: NL-ABBVIE-20K-114-3329591-00

PATIENT
  Sex: Male

DRUGS (2)
  1. DUODOPA [Suspect]
     Active Substance: CARBIDOPA\LEVODOPA
     Dosage: MD: 17.6ML, CD: 1.9ML/H, ED: 2.5ML, CND: 1.6ML/H, END: 2.3ML
     Route: 050
  2. DUODOPA [Suspect]
     Active Substance: CARBIDOPA\LEVODOPA
     Indication: PARKINSON^S DISEASE
     Dosage: MD: 17.6ML, CD: 1.5ML/H, ED: 2.3ML, CND: 0.8ML/H, END: 2.3ML
     Route: 050
     Dates: start: 20160620

REACTIONS (32)
  - Speech disorder [Not Recovered/Not Resolved]
  - Hypophagia [Not Recovered/Not Resolved]
  - Somnolence [Not Recovered/Not Resolved]
  - Stress [Unknown]
  - Aptyalism [Not Recovered/Not Resolved]
  - Amnesia [Not Recovered/Not Resolved]
  - On and off phenomenon [Not Recovered/Not Resolved]
  - Fibroma [Not Recovered/Not Resolved]
  - Hypophagia [Unknown]
  - Balance disorder [Not Recovered/Not Resolved]
  - Muscle rigidity [Not Recovered/Not Resolved]
  - Weight decreased [Recovered/Resolved]
  - Decreased appetite [Recovering/Resolving]
  - Freezing phenomenon [Not Recovered/Not Resolved]
  - Insomnia [Not Recovered/Not Resolved]
  - Stoma site reaction [Not Recovered/Not Resolved]
  - Aptyalism [Unknown]
  - Stoma complication [Not Recovered/Not Resolved]
  - Hypogeusia [Recovering/Resolving]
  - Fluid intake reduced [Not Recovered/Not Resolved]
  - Dry mouth [Not Recovered/Not Resolved]
  - Back disorder [Recovering/Resolving]
  - Stoma site erythema [Not Recovered/Not Resolved]
  - Tension [Unknown]
  - Stoma site haemorrhage [Not Recovered/Not Resolved]
  - Dehydration [Recovered/Resolved]
  - Dizziness [Not Recovered/Not Resolved]
  - Unevaluable event [Not Recovered/Not Resolved]
  - Tremor [Not Recovered/Not Resolved]
  - Choking [Not Recovered/Not Resolved]
  - Nocturia [Not Recovered/Not Resolved]
  - Speech disorder [Unknown]
